FAERS Safety Report 4679261-X (Version None)
Quarter: 2005Q2

REPORT INFORMATION
  Report Type: 
  Country: None (occurrence: None)
  Receive Date: 20050531
  Receipt Date: 20050531
  Transmission Date: 20051028
  Serious: No
  Sender: FDA-Public Use
  Company Number: None

PATIENT
  Sex: Female
  Weight: 70 kg

DRUGS (6)
  1. CYCLOPHOSPHAMIDE [Suspect]
     Dosage: EVERY TWO WEEKS FOR 6 CYCLES
     Dates: start: 20041025
  2. DOXORUBICIN HCL [Suspect]
     Dosage: EVERY TWO WEEKS FOR 6 CYCLES
  3. K-DUR 10 [Concomitant]
  4. IRON [Concomitant]
  5. LASIX [Concomitant]
  6. WELLBUTRIN [Concomitant]

REACTIONS (8)
  - CHEST DISCOMFORT [None]
  - FEELING COLD [None]
  - INFECTION [None]
  - MALAISE [None]
  - NEUTROPENIA [None]
  - PNEUMONITIS [None]
  - THROMBOCYTOPENIA [None]
  - URINARY TRACT INFECTION [None]
